FAERS Safety Report 5760304-7 (Version None)
Quarter: 2008Q2

REPORT INFORMATION
  Report Type: 
  Country: None (occurrence: None)
  Receive Date: 20080602
  Receipt Date: 20080522
  Transmission Date: 20081010
  Serious: Yes (Hospitalization)
  Sender: FDA-Public Use
  Company Number: GXKR2008GB04722

PATIENT
  Age: 49 Year
  Sex: Female
  Weight: 52 kg

DRUGS (2)
  1. CITALOPRAM HYDROBROMIDE [Suspect]
     Indication: DEPRESSION
     Dosage: 10 MG, ORAL
     Route: 048
     Dates: start: 20080508, end: 20080512
  2. BISOPROLOL FUMARATE [Suspect]
     Indication: PALPITATIONS
     Dosage: 3.75 MG, ORAL
     Route: 048
     Dates: start: 20071001

REACTIONS (1)
  - PALPITATIONS [None]
